FAERS Safety Report 6939579-4 (Version None)
Quarter: 2010Q3

REPORT INFORMATION
  Report Type: 
  Country: None (occurrence: None)
  Receive Date: 20100820
  Receipt Date: 20100809
  Transmission Date: 20110219
  Serious: Yes (Death, Hospitalization)
  Sender: FDA-Public Use
  Company Number: CIP10001920

PATIENT
  Age: 79 Year
  Sex: Male

DRUGS (2)
  1. FURADANTIN [Suspect]
     Dosage: 50MG THREE TIMES A DAY, ORAL, 50 MG EVERY TWO DAYS
     Route: 048
     Dates: start: 20091201, end: 20100401
  2. FURADANTIN [Suspect]
     Dosage: 50MG THREE TIMES A DAY, ORAL, 50 MG EVERY TWO DAYS
     Route: 048
     Dates: start: 20100612, end: 20100705

REACTIONS (1)
  - HEPATIC FAILURE [None]
